FAERS Safety Report 5897838-0 (Version None)
Quarter: 2008Q3

REPORT INFORMATION
  Report Type: 
  Country: None (occurrence: None)
  Receive Date: 20080924
  Receipt Date: 20080924
  Transmission Date: 20090109
  Serious: Yes (Other)
  Sender: FDA-Public Use
  Company Number: None

PATIENT
  Age: 51 Year
  Sex: Male
  Weight: 62.5964 kg

DRUGS (1)
  1. ACTOS [Suspect]
     Indication: DRUG THERAPY
     Dosage: 30MG TABLET ONCE A DAY PO
     Route: 048
     Dates: start: 20080909, end: 20080912

REACTIONS (4)
  - FLUID RETENTION [None]
  - JOINT SWELLING [None]
  - OEDEMA PERIPHERAL [None]
  - WEIGHT INCREASED [None]
